FAERS Safety Report 8466790-6 (Version None)
Quarter: 2012Q2

REPORT INFORMATION
  Report Type: 
  Country: None (occurrence: None)
  Receive Date: 20120626
  Receipt Date: 20120613
  Transmission Date: 20120825
  Serious: No
  Sender: FDA-Public Use
  Company Number: US-ASTRAZENECA-2012SE39470

PATIENT
  Age: 75 Year
  Sex: Female
  Weight: 86.2 kg

DRUGS (8)
  1. PAROXETINE [Concomitant]
  2. PULMICORT FLEXHALER [Suspect]
     Indication: ASTHMA
     Route: 055
  3. LOVASA [Concomitant]
  4. ZOLPIDEM [Concomitant]
  5. LIVALO [Concomitant]
  6. RANITIDINE [Concomitant]
  7. DIOVAN [Concomitant]
  8. VITAMIN D2 [Concomitant]

REACTIONS (1)
  - TONGUE DISCOLOURATION [None]
